FAERS Safety Report 25347503 (Version 1)
Quarter: 2025Q2

REPORT INFORMATION
  Report Type: Spontaneous
  Country: US (occurrence: None)
  Receive Date: 20250521
  Receipt Date: 20250521
  Transmission Date: 20250717
  Serious: Yes (unspecified)
  Sender: FDA-CTU
  Company Number: None

PATIENT
  Age: 79 Year
  Sex: Male
  Weight: 89.36 kg

DRUGS (7)
  1. REPATHA [Suspect]
     Active Substance: EVOLOCUMAB
     Indication: Blood cholesterol decreased
     Route: 050
     Dates: start: 20250506, end: 20250506
  2. LATANOPROST [Concomitant]
     Active Substance: LATANOPROST
  3. TIMOLOL MALEATE [Concomitant]
     Active Substance: TIMOLOL MALEATE
  4. ROSUVASTATIN [Concomitant]
     Active Substance: ROSUVASTATIN
  5. BAYER LOW DOSE ASPIRIN [Concomitant]
  6. LYSINE [Concomitant]
     Active Substance: LYSINE
  7. ADVIL [Concomitant]
     Active Substance: IBUPROFEN

REACTIONS (1)
  - Rash macular [None]

NARRATIVE: CASE EVENT DATE: 20250506
